FAERS Safety Report 8089064-4 (Version None)
Quarter: 2012Q1

REPORT INFORMATION
  Report Type: 
  Country: None (occurrence: None)
  Receive Date: 20120128
  Receipt Date: 20110721
  Transmission Date: 20120608
  Serious: No
  Sender: FDA-Public Use
  Company Number: US-ABBOTT-11P-163-0706254-00

PATIENT
  Age: 50 Year
  Sex: Female

DRUGS (4)
  1. PHENERGAN [Concomitant]
     Indication: ABDOMINAL DISCOMFORT
     Dosage: PRN
  2. LORTAB [Concomitant]
     Indication: PAIN
  3. HUMIRA [Suspect]
     Indication: CROHN'S DISEASE
     Dates: start: 20101221
  4. SOMA [Concomitant]
     Indication: MUSCLE RELAXANT THERAPY

REACTIONS (9)
  - VOMITING [None]
  - WEIGHT DECREASED [None]
  - INFLUENZA LIKE ILLNESS [None]
  - FREEZING PHENOMENON [None]
  - URINARY INCONTINENCE [None]
  - BODY TEMPERATURE INCREASED [None]
  - DIARRHOEA [None]
  - NAUSEA [None]
  - DECREASED APPETITE [None]
